FAERS Safety Report 13652462 (Version 1)
Quarter: 2017Q2

REPORT INFORMATION
  Report Type: Spontaneous
  Country: US (occurrence: US)
  Receive Date: 20170614
  Receipt Date: 20170614
  Transmission Date: 20170830
  Serious: No
  Sender: FDA-Public Use
  Company Number: US-ROCHE-1343769

PATIENT
  Sex: Male

DRUGS (14)
  1. LANTUS [Concomitant]
     Active Substance: INSULIN GLARGINE
  2. CLARITIN [Concomitant]
     Active Substance: LORATADINE
  3. MORPHINE [Concomitant]
     Active Substance: MORPHINE
  4. LACTULOSE. [Concomitant]
     Active Substance: LACTULOSE
     Route: 065
  5. SLOW-MAG [Concomitant]
     Active Substance: MAGNESIUM CHLORIDE
  6. XELODA [Suspect]
     Active Substance: CAPECITABINE
     Dosage: 1500 MG IN MORNING AND 100 MG IN EVENING
     Route: 048
     Dates: start: 20140126
  7. PEPCID [Concomitant]
     Active Substance: FAMOTIDINE
  8. NOVOLOG [Concomitant]
     Active Substance: INSULIN ASPART
  9. INSULIN [Concomitant]
     Active Substance: INSULIN NOS
  10. ZOFRAN [Concomitant]
     Active Substance: ONDANSETRON HYDROCHLORIDE
  11. NADOLOL. [Concomitant]
     Active Substance: NADOLOL
  12. FLOMAX [Concomitant]
     Active Substance: TAMSULOSIN HYDROCHLORIDE
  13. XELODA [Suspect]
     Active Substance: CAPECITABINE
     Indication: COLON CANCER
     Dosage: 3 AM, 2PM X 14 DS
     Route: 048
     Dates: start: 20140125
  14. XIFAXAN [Concomitant]
     Active Substance: RIFAXIMIN

REACTIONS (3)
  - Fatigue [Unknown]
  - Nausea [Unknown]
  - Fatigue [Not Recovered/Not Resolved]
